FAERS Safety Report 7638053-X (Version None)
Quarter: 2011Q3

REPORT INFORMATION
  Report Type: 
  Country: None (occurrence: None)
  Receive Date: 20110727
  Receipt Date: 20110714
  Transmission Date: 20111222
  Serious: Yes (Other)
  Sender: FDA-Public Use
  Company Number: GB-JNJFOC-20110507771

PATIENT
  Age: 5 Decade
  Sex: Male

DRUGS (3)
  1. AZATHIOPRINE [Suspect]
     Indication: CROHN'S DISEASE
  2. REMICADE [Suspect]
     Indication: CROHN'S DISEASE
     Route: 042
     Dates: start: 20100701, end: 20100701
  3. ADALIMUMAB [Suspect]
     Indication: CROHN'S DISEASE
     Dates: start: 20090701

REACTIONS (1)
  - NODULAR REGENERATIVE HYPERPLASIA [None]
